FAERS Safety Report 6349749-4 (Version None)
Quarter: 2009Q3

REPORT INFORMATION
  Report Type: 
  Country: None (occurrence: None)
  Receive Date: 20090911
  Receipt Date: 20090909
  Transmission Date: 20100115
  Serious: Yes (Death, Hospitalization)
  Sender: FDA-Public Use
  Company Number: PHHY2009CL13635

PATIENT
  Age: 35 Year
  Sex: Male

DRUGS (1)
  1. GLEEVEC [Suspect]
     Indication: CHRONIC MYELOID LEUKAEMIA
     Dosage: 400 MG PER DAY

REACTIONS (4)
  - MUSCULOSKELETAL STIFFNESS [None]
  - NAUSEA [None]
  - PAIN IN EXTREMITY [None]
  - PNEUMONIA [None]
